FAERS Safety Report 12203638 (Version 1)
Quarter: 2016Q1

REPORT INFORMATION
  Report Type: Spontaneous
  Country: US (occurrence: None)
  Receive Date: 20160322
  Receipt Date: 20160322
  Transmission Date: 20160526
  Serious: No
  Sender: FDA-Public Use
  Company Number: None

PATIENT
  Age: 57 Year
  Sex: Female
  Weight: 70.3 kg

DRUGS (1)
  1. FMT BOTTLE : 0052-0066-03 OPEN BIOME [Suspect]
     Active Substance: FECAL MICROBIOTA
     Indication: CLOSTRIDIUM DIFFICILE INFECTION
     Dosage: 30 ML X1 HGT
     Dates: start: 20160304

REACTIONS (1)
  - Procedural vomiting [None]

NARRATIVE: CASE EVENT DATE: 20160304
